FAERS Safety Report 9194017 (Version 2)
Quarter: 2013Q3

REPORT INFORMATION
  Report Type: Spontaneous
  Country: US (occurrence: US)
  Receive Date: 20130327
  Receipt Date: 20130906
  Transmission Date: 20140515
  Serious: No
  Sender: FDA-Public Use
  Company Number: US-ASTRAZENECA-2013SE14840

PATIENT
  Age: 73 Year
  Sex: Female
  Weight: 86.2 kg

DRUGS (8)
  1. ARIMIDEX [Suspect]
     Indication: BREAST CANCER
     Route: 048
     Dates: start: 2008
  2. ARIMIDEX [Suspect]
     Indication: BREAST CANCER
     Route: 048
     Dates: start: 2008
  3. ARIMIDEX [Suspect]
     Indication: BREAST CANCER
     Dosage: ANASTROZOLE (GENERIC)
     Route: 048
     Dates: start: 2008
  4. CRESTOR [Suspect]
     Indication: BLOOD CHOLESTEROL ABNORMAL
     Route: 048
  5. CRESTOR [Suspect]
     Indication: BLOOD CHOLESTEROL ABNORMAL
     Route: 048
  6. VIT D [Concomitant]
  7. TRILIPEX [Concomitant]
  8. OTHER MEDICATIONS [Concomitant]

REACTIONS (11)
  - Back pain [Unknown]
  - Insomnia [Unknown]
  - Muscular weakness [Unknown]
  - Pain [Unknown]
  - Pain in extremity [Unknown]
  - Restlessness [Unknown]
  - Blood cholesterol increased [Unknown]
  - Myalgia [Unknown]
  - Bone pain [Unknown]
  - Drug dose omission [Unknown]
  - Off label use [Unknown]
